FAERS Safety Report 25885733 (Version 1)
Quarter: 2025Q4

REPORT INFORMATION
  Report Type: Report from Study
  Country: AR (occurrence: AR)
  Receive Date: 20251006
  Receipt Date: 20251006
  Transmission Date: 20260118
  Serious: Yes (Other)
  Sender: AMGEN
  Company Number: AR-AMGEN-ARGSL2025034608

PATIENT
  Age: 57 Year
  Sex: Male

DRUGS (3)
  1. VECTIBIX [Suspect]
     Active Substance: PANITUMUMAB
     Indication: Colorectal cancer
     Dosage: UNK,15 DAYS
     Route: 065
     Dates: start: 20250204, end: 20250331
  2. VECTIBIX [Suspect]
     Active Substance: PANITUMUMAB
     Dosage: UNK (DOSE LOWERED), 15 DAYS
     Route: 065
     Dates: start: 20250408
  3. IRINOTECAN [Concomitant]
     Active Substance: IRINOTECAN
     Dosage: UNK

REACTIONS (21)
  - Blindness [Not Recovered/Not Resolved]
  - Bedridden [Unknown]
  - Ill-defined disorder [Unknown]
  - Rhinalgia [Unknown]
  - Feeling abnormal [Unknown]
  - Malaise [Unknown]
  - Scratch [Unknown]
  - Skin haemorrhage [Unknown]
  - Pain [Unknown]
  - Rash [Not Recovered/Not Resolved]
  - Epistaxis [Unknown]
  - Diarrhoea [Unknown]
  - Vomiting [Unknown]
  - Pruritus [Unknown]
  - Acne [Not Recovered/Not Resolved]
  - Eye disorder [Not Recovered/Not Resolved]
  - Therapy interrupted [Unknown]
  - Blister [Unknown]
  - Genital pain [Unknown]
  - Pain in extremity [Unknown]
  - Onychalgia [Unknown]

NARRATIVE: CASE EVENT DATE: 20250101
